FAERS Safety Report 8054273-7 (Version None)
Quarter: 2012Q1

REPORT INFORMATION
  Report Type: 
  Country: None (occurrence: None)
  Receive Date: 20120118
  Receipt Date: 20120110
  Transmission Date: 20120608
  Serious: Yes (Hospitalization)
  Sender: FDA-Public Use
  Company Number: PHHY2011NL113069

PATIENT
  Age: 10 Year
  Sex: Male

DRUGS (3)
  1. POLYETHYLENE GLYCOL [Concomitant]
     Dosage: UNK UKN, UNK
  2. METHYLPHENIDATE [Suspect]
     Dosage: 10 MG, QD
  3. METHYLPHENIDATE [Suspect]
     Indication: ATTENTION DEFICIT/HYPERACTIVITY DISORDER
     Dosage: 10 MG, BID

REACTIONS (15)
  - CONSTIPATION [None]
  - ENTEROCOCCAL INFECTION [None]
  - MIGRAINE [None]
  - HEADACHE [None]
  - WEIGHT INCREASED [None]
  - NAUSEA [None]
  - RED BLOOD CELL SEDIMENTATION RATE INCREASED [None]
  - DIPLOPIA [None]
  - NECK PAIN [None]
  - GIARDIASIS [None]
  - ABDOMINAL PAIN [None]
  - PAIN IN EXTREMITY [None]
  - PYREXIA [None]
  - VOMITING [None]
  - COUGH [None]
